FAERS Safety Report 5135082-5 (Version None)
Quarter: 2006Q4

REPORT INFORMATION
  Report Type: 
  Country: None (occurrence: None)
  Receive Date: 20060831
  Receipt Date: 20060606
  Transmission Date: 20070319
  Serious: No
  Sender: FDA-Public Use
  Company Number: 2006-BP-04446BP

PATIENT
  Sex: Male

DRUGS (5)
  1. SPIRIVA [Suspect]
     Indication: CHRONIC OBSTRUCTIVE PULMONARY DISEASE
     Dosage: 18 MCG (18 MCG,1 IN 1 D),IH
     Route: 055
  2. ASPIRIN [Concomitant]
  3. SOTALOL HCL [Concomitant]
  4. LOVASTATIN [Concomitant]
  5. LUPRON [Concomitant]

REACTIONS (1)
  - AGEUSIA [None]
